FAERS Safety Report 18428863 (Version 1)
Quarter: 2020Q4

REPORT INFORMATION
  Report Type: Spontaneous
  Country: US (occurrence: US)
  Receive Date: 20201026
  Receipt Date: 20201026
  Transmission Date: 20210114
  Serious: No
  Sender: FDA-Public Use
  Company Number: US-PFIZER INC-2020412052

PATIENT

DRUGS (1)
  1. LORLATINIB [Suspect]
     Active Substance: LORLATINIB
     Dosage: UNK

REACTIONS (7)
  - Personality change [Unknown]
  - Irritability [Unknown]
  - Bradykinesia [Unknown]
  - Depressed mood [Unknown]
  - Aggression [Unknown]
  - Lipids abnormal [Unknown]
  - Apathy [Unknown]
